FAERS Safety Report 13074029 (Version 2)
Quarter: 2017Q1

REPORT INFORMATION
  Report Type: Report from Study
  Country: FI (occurrence: FI)
  Receive Date: 20161229
  Receipt Date: 20170131
  Transmission Date: 20170428
  Serious: Yes (Other)
  Sender: FDA-Public Use
  Company Number: FI-MYLANLABS-2016M1057438

PATIENT

DRUGS (1)
  1. LEPONEX [Suspect]
     Active Substance: CLOZAPINE
     Indication: PRODUCT USED FOR UNKNOWN INDICATION
     Dosage: UNK
     Dates: end: 201612

REACTIONS (4)
  - Pneumonia [Unknown]
  - Neutrophil count decreased [Not Recovered/Not Resolved]
  - Neutrophilia [Unknown]
  - Asthma [Unknown]

NARRATIVE: CASE EVENT DATE: 2016
